FAERS Safety Report 6243009-8 (Version None)
Quarter: 2009Q2

REPORT INFORMATION
  Report Type: 
  Country: None (occurrence: None)
  Receive Date: 20090624
  Receipt Date: 20090616
  Transmission Date: 20091009
  Serious: Yes (Death, Other)
  Sender: FDA-Public Use
  Company Number: GB-PFIZER INC-2009227439

PATIENT
  Age: 63 Year

DRUGS (16)
  1. SUTENT [Suspect]
     Indication: BREAST CANCER METASTATIC
     Dosage: 37.5 MG, UNK
     Route: 048
     Dates: start: 20080101, end: 20090515
  2. CITALOPRAM [Concomitant]
     Indication: DEPRESSION
     Dosage: 40 MG, 1X/DAY
     Route: 048
  3. CYCLIZINE [Concomitant]
     Indication: NAUSEA
     Dosage: 50 MG, 3X/DAY
     Route: 048
  4. DEXAMETHASONE [Concomitant]
     Indication: DYSPNOEA
     Dosage: 6 MG, 1X/DAY
     Route: 058
  5. DOCUSATE [Concomitant]
     Indication: CONSTIPATION
     Dosage: 200 MG, 2X/DAY
     Route: 048
  6. FUROSEMIDE [Concomitant]
     Indication: LEFT VENTRICULAR FAILURE
     Dosage: 80 MG, 1X/DAY
     Route: 048
  7. GLYCOPYRRONIUM [Concomitant]
     Indication: INCREASED BRONCHIAL SECRETION
     Dosage: UNK
     Route: 058
  8. LEVOMEPROMAZINE [Concomitant]
     Indication: NAUSEA
     Dosage: UNK
     Route: 058
  9. LORAZEPAM [Concomitant]
     Indication: AGITATION
     Dosage: 0.5 MG, AS NEEDED
     Route: 060
  10. LORAZEPAM [Concomitant]
     Indication: DYSPNOEA
  11. MIDAZOLAM [Concomitant]
     Indication: AGITATION
     Dosage: UNK
     Route: 058
  12. MORPHINE [Concomitant]
     Indication: PAIN
     Dosage: UNK
     Route: 058
  13. OMEPRAZOLE [Concomitant]
     Indication: GASTROOESOPHAGEAL REFLUX DISEASE
     Dosage: 20 MG, 1X/DAY
     Route: 048
  14. PREDNISOLONE [Concomitant]
     Indication: LYMPHANGITIS
     Dosage: 10 MG, 1X/DAY
     Route: 048
  15. SALBUTAMOL [Concomitant]
     Indication: DYSPNOEA
     Dosage: 2.5 MG, 4X/DAY
     Route: 055
  16. TAMOXIFEN CITRATE [Concomitant]
     Indication: BREAST CANCER
     Dosage: 20 MG, 1X/DAY
     Route: 048

REACTIONS (2)
  - CARDIAC FAILURE [None]
  - CARDIAC VALVE DISEASE [None]
